FAERS Safety Report 12653782 (Version 1)
Quarter: 2016Q3

REPORT INFORMATION
  Report Type: Report from Study
  Country: CA (occurrence: CA)
  Receive Date: 20160816
  Receipt Date: 20160816
  Transmission Date: 20161109
  Serious: Yes (Hospitalization, Other)
  Sender: FDA-Public Use
  Company Number: CA-AMGEN-CANSL2016104018

PATIENT
  Age: 63 Year
  Sex: Female

DRUGS (6)
  1. ANASTROSOL KABI [Concomitant]
     Indication: NEOPLASM MALIGNANT
  2. EUROFER [Concomitant]
  3. OMETEC [Concomitant]
  4. VITAMIN D [Concomitant]
     Active Substance: CHOLECALCIFEROL
  5. PROLIA [Suspect]
     Active Substance: DENOSUMAB
     Indication: OSTEOPOROSIS POSTMENOPAUSAL
     Dosage: 60 MG/ML, UNK
     Route: 065
     Dates: start: 20140114
  6. DEXILANT [Concomitant]
     Active Substance: DEXLANSOPRAZOLE

REACTIONS (6)
  - Blood iron decreased [Unknown]
  - Myalgia [Unknown]
  - Haemorrhage [Unknown]
  - Spinal pain [Unknown]
  - Back pain [Unknown]
  - Faeces discoloured [Unknown]

NARRATIVE: CASE EVENT DATE: 2015
